FAERS Safety Report 23745901 (Version 1)
Quarter: 2024Q2

REPORT INFORMATION
  Report Type: Spontaneous
  Country: US (occurrence: US)
  Receive Date: 20240416
  Receipt Date: 20240416
  Transmission Date: 20240716
  Serious: No
  Sender: FDA-Public Use
  Company Number: US-SA-SAC20240410000769

PATIENT
  Age: 52 Year
  Sex: Male
  Weight: 67.58 kg

DRUGS (1)
  1. DUPIXENT [Suspect]
     Active Substance: DUPILUMAB
     Indication: Neurodermatitis
     Dosage: 300 MG, QOW
     Route: 058
     Dates: end: 20240320

REACTIONS (4)
  - Eating disorder [Unknown]
  - Insomnia [Unknown]
  - Pain in extremity [Unknown]
  - Facial pain [Unknown]
